FAERS Safety Report 12558112 (Version 1)
Quarter: 2016Q3

REPORT INFORMATION
  Report Type: Report from Study
  Country: AR (occurrence: AR)
  Receive Date: 20160714
  Receipt Date: 20160714
  Transmission Date: 20161109
  Serious: Yes (Death, Other)
  Sender: FDA-Public Use
  Company Number: AR-EMD SERONO-7251694

PATIENT
  Age: 33 Year
  Sex: Male
  Weight: 88 kg

DRUGS (1)
  1. REBIF [Suspect]
     Active Substance: INTERFERON BETA-1A
     Indication: RELAPSING-REMITTING MULTIPLE SCLEROSIS
     Route: 058
     Dates: start: 20090910

REACTIONS (6)
  - Retinal detachment [Unknown]
  - Gait disturbance [Recovered/Resolved]
  - Visual acuity reduced [Unknown]
  - Diplopia [Recovered/Resolved]
  - Central nervous system lesion [Unknown]
  - Sudden death [Fatal]

NARRATIVE: CASE EVENT DATE: 201107
